FAERS Safety Report 15470589 (Version 15)
Quarter: 2023Q2

REPORT INFORMATION
  Report Type: Report from Study
  Country: CA (occurrence: CA)
  Receive Date: 20181005
  Receipt Date: 20230626
  Transmission Date: 20230721
  Serious: Yes (Other)
  Sender: FDA-Public Use
  Company Number: CA-TAKEDA-2018TUS027388

PATIENT
  Age: 38 Year
  Sex: Male

DRUGS (12)
  1. VEDOLIZUMAB [Suspect]
     Active Substance: VEDOLIZUMAB
     Indication: Crohn^s disease
     Dosage: 300 MILLIGRAM
     Route: 042
     Dates: start: 20180412
  2. VEDOLIZUMAB [Suspect]
     Active Substance: VEDOLIZUMAB
     Dosage: 300 MILLIGRAM
     Route: 042
  3. VEDOLIZUMAB [Suspect]
     Active Substance: VEDOLIZUMAB
     Dosage: 300 MILLIGRAM
     Route: 042
  4. VEDOLIZUMAB [Suspect]
     Active Substance: VEDOLIZUMAB
     Dosage: 300 MILLIGRAM, Q4WEEKS
     Route: 042
     Dates: start: 20181105
  5. VEDOLIZUMAB [Suspect]
     Active Substance: VEDOLIZUMAB
     Dosage: 300 MILLIGRAM
     Route: 042
     Dates: start: 20200309
  6. VEDOLIZUMAB [Suspect]
     Active Substance: VEDOLIZUMAB
     Dosage: 300 MILLIGRAM, Q6WEEKS
     Route: 042
     Dates: start: 20210522
  7. VEDOLIZUMAB [Suspect]
     Active Substance: VEDOLIZUMAB
     Dosage: 300 MILLIGRAM, Q6WEEKS
     Route: 042
  8. VEDOLIZUMAB [Suspect]
     Active Substance: VEDOLIZUMAB
     Dosage: 300 MILLIGRAM, Q6WEEKS
     Route: 042
  9. VEDOLIZUMAB [Suspect]
     Active Substance: VEDOLIZUMAB
     Dosage: 300 MILLIGRAM, Q6WEEKS
     Route: 042
  10. PREGABALIN [Concomitant]
     Active Substance: PREGABALIN
     Dosage: 75 MILLIGRAM, BID
  11. CITALOPRAM [Concomitant]
     Active Substance: CITALOPRAM HYDROBROMIDE
     Dosage: 10 MILLIGRAM, QD
  12. ABILIFY [Concomitant]
     Active Substance: ARIPIPRAZOLE
     Dosage: 2 MILLIGRAM, QD

REACTIONS (32)
  - Crohn^s disease [Unknown]
  - Coeliac disease [Unknown]
  - Neuropathy peripheral [Unknown]
  - Therapeutic reaction time decreased [Recovering/Resolving]
  - Tinnitus [Unknown]
  - Diarrhoea [Unknown]
  - Asthenia [Not Recovered/Not Resolved]
  - Malaise [Unknown]
  - Dehydration [Unknown]
  - Pain [Unknown]
  - COVID-19 [Recovered/Resolved]
  - Weight decreased [Unknown]
  - Mesenteric panniculitis [Unknown]
  - Hepatic steatosis [Unknown]
  - Abdominal pain upper [Unknown]
  - Dysuria [Unknown]
  - Chromaturia [Unknown]
  - Pollakiuria [Unknown]
  - Electric shock sensation [Unknown]
  - Neck pain [Unknown]
  - Off label use [Unknown]
  - Abdominal pain [Not Recovered/Not Resolved]
  - Rhinorrhoea [Unknown]
  - Ear pain [Unknown]
  - Abdominal distension [Unknown]
  - Flatulence [Unknown]
  - Chills [Unknown]
  - Night sweats [Unknown]
  - Headache [Unknown]
  - Oropharyngeal pain [Unknown]
  - Pyrexia [Unknown]
  - Nausea [Unknown]

NARRATIVE: CASE EVENT DATE: 20180822
